FAERS Safety Report 25033046 (Version 1)
Quarter: 2025Q1

REPORT INFORMATION
  Report Type: Report from Study
  Country: CN (occurrence: CN)
  Receive Date: 20250303
  Receipt Date: 20250303
  Transmission Date: 20250408
  Serious: Yes (Life-Threatening, Hospitalization)
  Sender: NOVARTIS
  Company Number: CN-002147023-NVSC2025CN034893

PATIENT
  Age: 50 Year
  Sex: Female
  Weight: 52.7 kg

DRUGS (4)
  1. SANDOSTATIN LAR DEPOT [Suspect]
     Active Substance: OCTREOTIDE ACETATE
     Indication: Gastroenteropancreatic neuroendocrine tumour disease
     Route: 065
     Dates: end: 202209
  2. SANDOSTATIN LAR DEPOT [Suspect]
     Active Substance: OCTREOTIDE ACETATE
     Route: 030
     Dates: start: 20230920, end: 20230920
  3. SANDOSTATIN LAR DEPOT [Suspect]
     Active Substance: OCTREOTIDE ACETATE
  4. ENTECAVIR [Concomitant]
     Active Substance: ENTECAVIR
     Indication: Viral hepatitis carrier
     Dosage: 0.5 MG, QD
     Route: 048
     Dates: start: 20230907

REACTIONS (7)
  - Hypoglycaemia [Recovered/Resolved]
  - Hypoglycaemic coma [Recovered/Resolved]
  - Hepatic neoplasm [Unknown]
  - Hypoproteinaemia [Recovered/Resolved]
  - Blood creatine phosphokinase MB increased [Unknown]
  - White blood cell count decreased [Recovered/Resolved]
  - Neutrophil count decreased [Recovered/Resolved]

NARRATIVE: CASE EVENT DATE: 20220901
